FAERS Safety Report 13767694 (Version 2)
Quarter: 2017Q4

REPORT INFORMATION
  Report Type: Spontaneous
  Country: NL (occurrence: NL)
  Receive Date: 20170719
  Receipt Date: 20171117
  Transmission Date: 20180320
  Serious: Yes (Hospitalization, Congenital Anomaly, Other)
  Sender: FDA-Public Use
  Company Number: NL-VISTAPHARM, INC.-VER201707-000209

PATIENT
  Sex: Male
  Weight: 3.1 kg

DRUGS (3)
  1. VALPROIC ACID. [Suspect]
     Active Substance: VALPROIC ACID
     Indication: FOETAL EXPOSURE DURING PREGNANCY
  2. VALPROIC ACID. [Suspect]
     Active Substance: VALPROIC ACID
  3. VALPROIC ACID. [Suspect]
     Active Substance: VALPROIC ACID

REACTIONS (5)
  - Drug withdrawal syndrome neonatal [None]
  - Toxicity to various agents [Unknown]
  - Drug level increased [Unknown]
  - Foetal anticonvulsant syndrome [Not Recovered/Not Resolved]
  - Autism spectrum disorder [Unknown]
